FAERS Safety Report 6069554-6 (Version None)
Quarter: 2009Q1

REPORT INFORMATION
  Report Type: 
  Country: None (occurrence: None)
  Receive Date: 20090206
  Receipt Date: 20090126
  Transmission Date: 20090719
  Serious: Yes (Death, Hospitalization)
  Sender: FDA-Public Use
  Company Number: TH-BAXTER-2009BH001636

PATIENT
  Age: 62 Year
  Sex: Male

DRUGS (2)
  1. DIANEAL [Suspect]
     Indication: PERITONEAL DIALYSIS
     Route: 033
     Dates: start: 20081217, end: 20090117
  2. DIANEAL [Suspect]
     Route: 033
     Dates: start: 20090117, end: 20090125

REACTIONS (3)
  - CARDIAC FAILURE ACUTE [None]
  - DYSPNOEA [None]
  - FATIGUE [None]
